FAERS Safety Report 16879895 (Version 1)
Quarter: 2019Q4

REPORT INFORMATION
  Report Type: Spontaneous
  Country: CA (occurrence: CA)
  Receive Date: 20191003
  Receipt Date: 20191003
  Transmission Date: 20200122
  Serious: Yes (Other)
  Sender: FDA-Public Use
  Company Number: CA-AUROBINDO-AUR-APL-2019-063557

PATIENT
  Age: 46 Year
  Sex: Female

DRUGS (3)
  1. ENBREL [Suspect]
     Active Substance: ETANERCEPT
     Indication: PSORIASIS
     Dosage: UNK
     Route: 065
  2. ENBREL [Suspect]
     Active Substance: ETANERCEPT
     Indication: PSORIATIC ARTHROPATHY
     Dosage: 50 MILLIGRAM, ONCE A WEEK
     Route: 065
  3. CIPROFLOXACIN. [Suspect]
     Active Substance: CIPROFLOXACIN
     Indication: URINARY TRACT INFECTION
     Dosage: UNK
     Route: 065

REACTIONS (11)
  - Rash [Recovered/Resolved]
  - Psoriasis [Recovered/Resolved]
  - Single functional kidney [Recovered/Resolved]
  - Erythema [Recovered/Resolved]
  - Urinary tract infection [Recovered/Resolved]
  - Adverse reaction [Recovered/Resolved]
  - Arthritis [Recovered/Resolved]
  - Stress [Recovered/Resolved]
  - Colitis [Recovered/Resolved]
  - Papule [Recovered/Resolved]
  - Nephrolithiasis [Recovered/Resolved]
